FAERS Safety Report 23889221 (Version 1)
Quarter: 2024Q2

REPORT INFORMATION
  Report Type: Spontaneous
  Country: DE (occurrence: DE)
  Receive Date: 20240523
  Receipt Date: 20240523
  Transmission Date: 20240716
  Serious: Yes (Other)
  Sender: FDA-Public Use
  Company Number: DE-002147023-PHHY2019DE137854

PATIENT
  Sex: Female

DRUGS (1)
  1. GLYCOPYRROLATE [Suspect]
     Active Substance: GLYCOPYRROLATE
     Indication: Product used for unknown indication
     Dosage: 44 UG, QD
     Route: 065

REACTIONS (6)
  - Lymphadenopathy [Not Recovered/Not Resolved]
  - Swelling face [Not Recovered/Not Resolved]
  - Nasal congestion [Unknown]
  - Asthenia [Unknown]
  - Pain in extremity [Unknown]
  - Dry mouth [Unknown]
